FAERS Safety Report 21597882 (Version 1)
Quarter: 2022Q4

REPORT INFORMATION
  Report Type: Report from Study
  Country: US (occurrence: US)
  Receive Date: 20221115
  Receipt Date: 20221115
  Transmission Date: 20230113
  Serious: Yes (Hospitalization)
  Sender: FDA-Public Use
  Company Number: US-ABBVIE-22K-163-4482517-00

PATIENT
  Sex: Male
  Weight: 79.378 kg

DRUGS (10)
  1. HUMIRA [Suspect]
     Active Substance: ADALIMUMAB
     Indication: Crohn^s disease
     Route: 058
     Dates: start: 202202, end: 202208
  2. HUMIRA [Suspect]
     Active Substance: ADALIMUMAB
     Indication: Colitis ulcerative
     Route: 058
  3. HUMIRA [Suspect]
     Active Substance: ADALIMUMAB
     Route: 058
     Dates: start: 202201, end: 202201
  4. zolpidem 5 MG tablet  (AM BIEN) [Concomitant]
     Indication: Product used for unknown indication
     Dosage: TAKE 1 TABLET (5 MG TOTAL) BY MOUTH NIGHTLY AS NEEDED FOR SLEEP FOR UP TO 90 DAYS.
     Route: 048
  5. ferrous sulfate 325 (65 FE) MG tablet [Concomitant]
     Indication: Product used for unknown indication
     Dosage: TAKE 325 MG BY MOUTH DAILY.
     Route: 048
  6. cyanocobalamin 1,000 mcg/mL injection [Concomitant]
     Indication: Product used for unknown indication
     Dosage: INJECT 1ML IM WEEKLY X 1 MONTH, EVERY 2 WEEKS X 1 MONTH, MONTHLY THEREAFTER
  7. levocetirizine (XYZAL) [Concomitant]
     Indication: Product used for unknown indication
     Dosage: TAKE 5 MG
     Route: 048
  8. sertraline  (Zoloft) [Concomitant]
     Indication: Product used for unknown indication
     Dosage: TAKE 1 TABLET (100 MG TOTAL) BY MOUTH DAILY
     Route: 048
  9. cholecalciferol, vitamin D3, 25 mcg (1,000 unit) capsule [Concomitant]
     Indication: Product used for unknown indication
     Dosage: TAKE 1,000 UNITS BY MOUTH 2 (TWO) TIMES A DAY.
     Route: 048
  10. SYNTHROID [Concomitant]
     Active Substance: LEVOTHYROXINE SODIUM
     Indication: Product used for unknown indication
     Dosage: TAKE 1 TABLET (112 MCG TOTAL) BY MOUTH DAILY
     Route: 048

REACTIONS (2)
  - Hospitalisation [Not Recovered/Not Resolved]
  - Drug ineffective [Unknown]
